FAERS Safety Report 8962385 (Version 1)
Quarter: 2012Q4

REPORT INFORMATION
  Report Type: Spontaneous
  Country: US (occurrence: None)
  Receive Date: 20121211
  Receipt Date: 20121211
  Transmission Date: 20130627
  Serious: Yes (Other)
  Sender: FDA-Public Use
  Company Number: None

PATIENT
  Sex: Male

DRUGS (2)
  1. OFATUMUMAB [Suspect]
     Dates: start: 201106, end: 201110
  2. CAMPATH [Suspect]
     Dosage: 30mg x 3 times a week
     Dates: start: 201106, end: 201110

REACTIONS (1)
  - Prostate cancer [None]
